FAERS Safety Report 24444885 (Version 4)
Quarter: 2025Q3

REPORT INFORMATION
  Report Type: Spontaneous
  Country: IL (occurrence: IL)
  Receive Date: 20241016
  Receipt Date: 20250803
  Transmission Date: 20251021
  Serious: Yes (Other)
  Sender: ALEXION PHARMACEUTICALS
  Company Number: IL-ALXN-202407ISR002306IL

PATIENT
  Age: 16 Year
  Sex: Female
  Weight: 86 kg

DRUGS (1)
  1. SOLIRIS [Suspect]
     Active Substance: ECULIZUMAB
     Indication: Thrombotic microangiopathy
     Dosage: 1200 MILLIGRAM, Q2W
     Route: 065
     Dates: start: 20220719

REACTIONS (2)
  - Renal injury [Unknown]
  - Off label use [Unknown]

NARRATIVE: CASE EVENT DATE: 20220719
